FAERS Safety Report 10207556 (Version 1)
Quarter: 2014Q2

REPORT INFORMATION
  Report Type: Spontaneous
  Country: US (occurrence: US)
  Receive Date: 20140530
  Receipt Date: 20140530
  Transmission Date: 20141212
  Serious: No
  Sender: FDA-Public Use
  Company Number: US-PFIZER INC-2014148046

PATIENT
  Age: 41 Year
  Sex: Male
  Weight: 97.51 kg

DRUGS (1)
  1. EFFEXOR XR [Suspect]
     Indication: ANXIETY
     Dosage: 75 MG, DAILY
     Dates: start: 201402

REACTIONS (1)
  - Headache [Unknown]
